FAERS Safety Report 15343500 (Version 3)
Quarter: 2019Q2

REPORT INFORMATION
  Report Type: Spontaneous
  Country: US (occurrence: US)
  Receive Date: 20180903
  Receipt Date: 20190612
  Transmission Date: 20190711
  Serious: Yes (Hospitalization)
  Sender: FDA-Public Use
  Company Number: US-PFIZER INC-2018350072

PATIENT
  Age: 50 Year
  Sex: Male

DRUGS (2)
  1. LYRICA [Suspect]
     Active Substance: PREGABALIN
     Indication: DIABETIC NEUROPATHY
  2. LYRICA [Suspect]
     Active Substance: PREGABALIN
     Indication: RESTLESS LEGS SYNDROME
     Dosage: 50 MG, 3X/DAY
     Route: 048
     Dates: start: 2014

REACTIONS (7)
  - Frustration tolerance decreased [Recovered/Resolved]
  - Intentional product use issue [Recovered/Resolved]
  - Drug ineffective for unapproved indication [Recovered/Resolved]
  - Scratch [Recovered/Resolved]
  - Product prescribing error [Recovered/Resolved]
  - Pain [Recovered/Resolved]
  - Insomnia [Recovered/Resolved]
